FAERS Safety Report 20514444 (Version 6)
Quarter: 2023Q1

REPORT INFORMATION
  Report Type: Spontaneous
  Country: PT (occurrence: PT)
  Receive Date: 20220224
  Receipt Date: 20230331
  Transmission Date: 20230417
  Serious: Yes (Hospitalization, Other)
  Sender: FDA-Public Use
  Company Number: PT-MYLANLABS-2022M1013987

PATIENT
  Age: 77 Year
  Sex: Female

DRUGS (6)
  1. PIPERACILLIN AND TAZOBACTAM [Interacting]
     Active Substance: PIPERACILLIN SODIUM\TAZOBACTAM SODIUM
     Indication: Urosepsis
     Dosage: UNK
     Route: 048
  2. PIPERACILLIN AND TAZOBACTAM [Interacting]
     Active Substance: PIPERACILLIN SODIUM\TAZOBACTAM SODIUM
     Indication: Candida infection
  3. AMOXICILLIN\CLAVULANIC ACID [Suspect]
     Active Substance: AMOXICILLIN\CLAVULANIC ACID
     Indication: Urosepsis
     Dosage: UNK
     Route: 048
  4. CIPROFLOXACIN [Interacting]
     Active Substance: CIPROFLOXACIN
     Indication: Urosepsis
     Dosage: UNK
     Route: 065
  5. FLUCONAZOLE [Interacting]
     Active Substance: FLUCONAZOLE
     Indication: Urosepsis
     Dosage: UNK
     Route: 048
  6. FLUCONAZOLE [Interacting]
     Active Substance: FLUCONAZOLE
     Indication: Candida infection
     Dosage: UNK
     Route: 065

REACTIONS (14)
  - Ventricular extrasystoles [Recovered/Resolved]
  - Electrocardiogram abnormal [Recovered/Resolved]
  - Nodal rhythm [Recovered/Resolved]
  - Cardiotoxicity [Unknown]
  - Supraventricular extrasystoles [Recovered/Resolved]
  - Pathogen resistance [Unknown]
  - Drug interaction [Recovered/Resolved]
  - Drug ineffective [Unknown]
  - Treatment failure [Unknown]
  - Bradycardia [Recovered/Resolved]
  - Heart rate decreased [Recovered/Resolved]
  - Electrocardiogram QT prolonged [Recovered/Resolved]
  - Pyrexia [Unknown]
  - Therapeutic product ineffective [Unknown]
